FAERS Safety Report 9483222 (Version 1)
Quarter: 2013Q3

REPORT INFORMATION
  Report Type: Spontaneous
  Country: US (occurrence: US)
  Receive Date: 20130828
  Receipt Date: 20130828
  Transmission Date: 20140515
  Serious: Yes (Hospitalization)
  Sender: FDA-Public Use
  Company Number: US-AMGEN-KDL244145

PATIENT
  Age: 63 Year
  Sex: Female

DRUGS (2)
  1. ENBREL [Suspect]
     Indication: PSORIASIS
     Dosage: UNK UNK, UNK
     Route: 058
     Dates: start: 20041001, end: 200506
  2. ENBREL [Suspect]
     Dosage: UNK UNK, UNK
     Route: 058
     Dates: start: 20041001, end: 200506

REACTIONS (2)
  - Abdominal operation [Unknown]
  - Psoriasis [Not Recovered/Not Resolved]
